FAERS Safety Report 16692533 (Version 4)
Quarter: 2019Q4

REPORT INFORMATION
  Report Type: Spontaneous
  Country: US (occurrence: US)
  Receive Date: 20190812
  Receipt Date: 20191218
  Transmission Date: 20200122
  Serious: No
  Sender: FDA-Public Use
  Company Number: US-PFIZER INC-2019339262

PATIENT
  Age: 64 Year
  Sex: Male

DRUGS (2)
  1. CAVERJECT [Suspect]
     Active Substance: ALPROSTADIL
     Indication: CEREBROVASCULAR ACCIDENT
     Dosage: 20 UG, UNK
  2. CAVERJECT [Suspect]
     Active Substance: ALPROSTADIL
     Dosage: HE RECONSTITUTED HIS ALPROSTADIL OF 20MCG WITH 7CC OF WATER AND THEN ONLY USES 1 CC.

REACTIONS (5)
  - Ejaculation failure [Unknown]
  - Erection increased [Unknown]
  - Product use in unapproved indication [Unknown]
  - Wrong technique in product usage process [Unknown]
  - Off label use [Unknown]
